FAERS Safety Report 8103971-5 (Version None)
Quarter: 2012Q1

REPORT INFORMATION
  Report Type: 
  Country: None (occurrence: None)
  Receive Date: 20120201
  Receipt Date: 20120124
  Transmission Date: 20120608
  Serious: No
  Sender: FDA-Public Use
  Company Number: US-B.I. PHARMACEUTICALS,INC./RIDGEFIELD-2012-BP-01431BP

PATIENT
  Sex: Male

DRUGS (9)
  1. SPIRIVA [Suspect]
     Indication: CHRONIC OBSTRUCTIVE PULMONARY DISEASE
     Dosage: 18 MCG
     Route: 055
     Dates: start: 20110901, end: 20111101
  2. HYDROCODONE BITARTRATE [Concomitant]
     Indication: PAIN
     Route: 048
     Dates: start: 20090101
  3. LOSARTAN POTASSIUM AND HYDROCHLOROTHIAZIDE [Concomitant]
     Indication: HYPERTENSION
     Dosage: 25 MG
     Route: 048
     Dates: start: 20111001
  4. TOVIAZ [Concomitant]
     Indication: INCONTINENCE
     Dosage: 4 MG
     Route: 048
     Dates: start: 20110501
  5. NORVASC [Concomitant]
     Indication: HYPERTENSION
     Dosage: 5 MG
     Route: 048
  6. PROVENTIL [Concomitant]
     Indication: CHRONIC OBSTRUCTIVE PULMONARY DISEASE
     Dosage: 8 PUF
     Route: 055
     Dates: start: 20080101
  7. FISH OIL [Concomitant]
     Indication: CATARACT OPERATION
     Dosage: 3000 U
     Route: 048
     Dates: start: 20111001
  8. CLONIDINE HCL [Concomitant]
     Indication: HYPERTENSION
     Dosage: 0.3 MG
     Route: 048
     Dates: start: 20111101
  9. DEXILANT [Concomitant]
     Dosage: 60 MG
     Route: 048

REACTIONS (1)
  - PLEURITIC PAIN [None]
